FAERS Safety Report 10017174 (Version 1)
Quarter: 2014Q1

REPORT INFORMATION
  Report Type: Spontaneous
  Country: IE (occurrence: IE)
  Receive Date: 20140318
  Receipt Date: 20140318
  Transmission Date: 20141002
  Serious: Yes (Other)
  Sender: FDA-Public Use
  Company Number: IE-SUN PHARMACEUTICAL INDUSTRIES LTD-2014SUN00536

PATIENT
  Age: 79 Year
  Sex: Male

DRUGS (1)
  1. GEMCITABINE INJECTION [Suspect]
     Indication: ADENOCARCINOMA PANCREAS
     Route: 065

REACTIONS (1)
  - Eosinophilic pneumonia acute [Unknown]
